FAERS Safety Report 9510971 (Version 1)
Quarter: 2013Q3

REPORT INFORMATION
  Report Type: Spontaneous
  Country: KR (occurrence: KR)
  Receive Date: 20130910
  Receipt Date: 20130910
  Transmission Date: 20140515
  Serious: Yes (Death, Hospitalization)
  Sender: FDA-Public Use
  Company Number: KR-SHIRE-ALL1-2013-06143

PATIENT
  Age: 74 Year
  Sex: Female

DRUGS (6)
  1. AGRYLIN [Suspect]
     Indication: THROMBOCYTOSIS
     Dosage: 1.5 MG (THREE 0.5 CAPSULES PER DAY), UNKNOWN
     Route: 048
  2. AGRYLIN [Suspect]
     Dosage: 1 MG (TWO 0.5 CAPSULES PER DAY), UNKNOWN
     Route: 048
     Dates: start: 201306
  3. ADALAT [Concomitant]
     Indication: HYPERTENSION
     Dosage: UNK, UNKNOWN
     Route: 048
  4. DICHLOZID [Concomitant]
     Indication: HYPERTENSION
     Dosage: UNK, UNKNOWN
     Route: 048
  5. ASPIRIN [Concomitant]
     Indication: HYPERTENSION
     Dosage: 100 MG, UNKNOWN
     Route: 048
  6. HYDRINE                            /00137301/ [Concomitant]
     Indication: THROMBOCYTOSIS
     Dosage: UNK UNK, UNKNOWN
     Route: 048

REACTIONS (2)
  - Death [Fatal]
  - Cerebral haemorrhage [Unknown]
